FAERS Safety Report 15869598 (Version 2)
Quarter: 2019Q1

REPORT INFORMATION
  Report Type: Spontaneous
  Country: CZ (occurrence: CZ)
  Receive Date: 20190125
  Receipt Date: 20190206
  Transmission Date: 20190417
  Serious: Yes (Other)
  Sender: FDA-Public Use
  Company Number: PHHY2019CZ015025

PATIENT
  Sex: Female

DRUGS (2)
  1. PAZOPANIB [Suspect]
     Active Substance: PAZOPANIB
     Indication: RENAL CANCER
     Dosage: UNK
     Route: 065
     Dates: start: 201511
  2. PAZOPANIB [Suspect]
     Active Substance: PAZOPANIB
     Dosage: UNK
     Route: 065
     Dates: end: 201804

REACTIONS (4)
  - Metastases to lung [Recovering/Resolving]
  - Lymphadenopathy mediastinal [Recovering/Resolving]
  - Cholecystitis [Unknown]
  - Renal neoplasm [Unknown]

NARRATIVE: CASE EVENT DATE: 201609
